FAERS Safety Report 9938208 (Version 1)
Quarter: 2014Q1

REPORT INFORMATION
  Report Type: Report from Study
  Country: US (occurrence: US)
  Receive Date: 20140303
  Receipt Date: 20140303
  Transmission Date: 20141002
  Serious: No
  Sender: FDA-Public Use
  Company Number: US-ABBVIE-13P-163-1031627-00

PATIENT
  Age: 48 Year
  Sex: Male

DRUGS (9)
  1. HUMIRA [Suspect]
     Indication: ANKYLOSING SPONDYLITIS
     Dates: start: 20120607
  2. ASACOL [Concomitant]
     Indication: COLITIS
     Dosage: TAKES 6-9 DAILY
     Dates: start: 2008
  3. ALIGN PROBIOTIC [Concomitant]
     Indication: PRODUCT USED FOR UNKNOWN INDICATION
  4. LUNESTA [Concomitant]
     Indication: INSOMNIA
     Dosage: NIGHTLY
  5. PEPCID [Concomitant]
     Indication: GASTROOESOPHAGEAL REFLUX DISEASE
  6. GLUCOSAMINE [Concomitant]
     Indication: ARTHROPATHY
  7. TUMERIC [Concomitant]
     Indication: GASTRIC DISORDER
  8. TUMS [Concomitant]
     Indication: ABDOMINAL DISCOMFORT
     Dosage: DURING NIGHT
  9. PANTOPRAZOLE [Concomitant]
     Indication: GASTROOESOPHAGEAL REFLUX DISEASE
     Dosage: 40 MG DAILY

REACTIONS (14)
  - Oropharyngeal pain [Not Recovered/Not Resolved]
  - Weight increased [Not Recovered/Not Resolved]
  - Oesophageal disorder [Not Recovered/Not Resolved]
  - Vision blurred [Not Recovered/Not Resolved]
  - Dizziness [Not Recovered/Not Resolved]
  - Abdominal distension [Not Recovered/Not Resolved]
  - Colitis [Not Recovered/Not Resolved]
  - Abdominal pain [Not Recovered/Not Resolved]
  - Hypertension [Not Recovered/Not Resolved]
  - Muscle twitching [Not Recovered/Not Resolved]
  - Irritable bowel syndrome [Not Recovered/Not Resolved]
  - Rash papular [Not Recovered/Not Resolved]
  - Hyperhidrosis [Not Recovered/Not Resolved]
  - Haemorrhoids [Not Recovered/Not Resolved]
